FAERS Safety Report 11539502 (Version 1)
Quarter: 2015Q3

REPORT INFORMATION
  Report Type: Spontaneous
  Country: US (occurrence: None)
  Receive Date: 20150922
  Receipt Date: 20150922
  Transmission Date: 20151125
  Serious: Yes (Hospitalization, Disabling, Other)
  Sender: FDA-Public Use
  Company Number: None

PATIENT
  Age: 52 Year
  Sex: Female
  Weight: 90.72 kg

DRUGS (11)
  1. CLONIDINE. [Concomitant]
     Active Substance: CLONIDINE
  2. TACROLIMUS. [Concomitant]
     Active Substance: TACROLIMUS
  3. ATORVASTATIN [Concomitant]
     Active Substance: ATORVASTATIN
  4. PROBIOTIC [Concomitant]
     Active Substance: PROBIOTICS NOS
  5. HYDRALAZINE [Concomitant]
     Active Substance: HYDRALAZINE HYDROCHLORIDE
  6. MYCOPHENOLATE [Concomitant]
     Active Substance: MYCOPHENOLIC ACID
  7. LEVOTHROID [Concomitant]
     Active Substance: LEVOTHYROXINE SODIUM
  8. AMITRIPTYLINE [Concomitant]
     Active Substance: AMITRIPTYLINE
  9. MYFORTIC [Suspect]
     Active Substance: MYCOPHENOLATE SODIUM
     Indication: PROPHYLAXIS AGAINST TRANSPLANT REJECTION
     Route: 048
  10. PACEMAKER [Concomitant]
  11. BUMEX [Concomitant]
     Active Substance: BUMETANIDE

REACTIONS (14)
  - Colitis [None]
  - Diverticulitis [None]
  - Irritable bowel syndrome [None]
  - Nausea [None]
  - Gastrointestinal disorder [None]
  - Pain [None]
  - Diabetes mellitus [None]
  - Vision blurred [None]
  - Vomiting [None]
  - Abdominal pain [None]
  - Diarrhoea [None]
  - Gastrooesophageal reflux disease [None]
  - Chronic kidney disease [None]
  - Anxiety [None]

NARRATIVE: CASE EVENT DATE: 20060130
